FAERS Safety Report 7518303-0 (Version None)
Quarter: 2011Q2

REPORT INFORMATION
  Report Type: 
  Country: None (occurrence: None)
  Receive Date: 20110601
  Receipt Date: 20110601
  Transmission Date: 20111010
  Serious: No
  Sender: FDA-Public Use
  Company Number: None

PATIENT
  Sex: Female
  Weight: 66.2252 kg

DRUGS (1)
  1. ACYCLOVIR [Suspect]

REACTIONS (4)
  - PRODUCT QUALITY ISSUE [None]
  - DIARRHOEA [None]
  - UNEVALUABLE EVENT [None]
  - MALAISE [None]
